FAERS Safety Report 7551452-X (Version None)
Quarter: 2011Q2

REPORT INFORMATION
  Report Type: 
  Country: None (occurrence: None)
  Receive Date: 20110616
  Receipt Date: 20110609
  Transmission Date: 20111010
  Serious: Yes (Other)
  Sender: FDA-Public Use
  Company Number: NZ-ROCHE-781494

PATIENT
  Sex: Female

DRUGS (1)
  1. HERCEPTIN [Suspect]
     Dosage: STOP DATE: UNSPECIFIED DATE IN 2011
     Route: 065
     Dates: start: 20060101

REACTIONS (1)
  - NEOPLASM MALIGNANT [None]
